FAERS Safety Report 8446912-3 (Version None)
Quarter: 2012Q2

REPORT INFORMATION
  Report Type: 
  Country: None (occurrence: None)
  Receive Date: 20120613
  Receipt Date: 20120613
  Transmission Date: 20120825
  Serious: Yes (Other)
  Sender: FDA-Public Use
  Company Number: None

PATIENT
  Sex: Female

DRUGS (2)
  1. XELODA 500 MG GENERTECH [Suspect]
     Dosage: 1500 MG BID 14 ON , 7 OFF
     Dates: start: 20120409
  2. XELODA 500 MG GENERTECH [Suspect]
     Dosage: 1500 MG BID 14 ON , 7 OFF
     Dates: start: 20120601

REACTIONS (4)
  - PALMAR-PLANTAR ERYTHRODYSAESTHESIA SYNDROME [None]
  - PLEURAL EFFUSION [None]
  - FLUID RETENTION [None]
  - VISUAL IMPAIRMENT [None]
